FAERS Safety Report 10382904 (Version 1)
Quarter: 2014Q3

REPORT INFORMATION
  Report Type: Spontaneous
  Country: US (occurrence: US)
  Receive Date: 20140813
  Receipt Date: 20140813
  Transmission Date: 20150326
  Serious: No
  Sender: FDA-Public Use
  Company Number: US-SA-2014SA029137

PATIENT
  Age: 42 Year
  Sex: Female
  Weight: 79 kg

DRUGS (1)
  1. FABRAZYME [Suspect]
     Active Substance: AGALSIDASE BETA
     Indication: FABRY^S DISEASE
     Route: 042
     Dates: start: 20110314

REACTIONS (5)
  - Urticaria [Unknown]
  - Pruritus generalised [Unknown]
  - Thrombosis [Unknown]
  - Skin mass [Unknown]
  - Generalised erythema [Unknown]

NARRATIVE: CASE EVENT DATE: 20140303
